FAERS Safety Report 7395075-4 (Version None)
Quarter: 2011Q1

REPORT INFORMATION
  Report Type: 
  Country: None (occurrence: None)
  Receive Date: 20110331
  Receipt Date: 20110331
  Transmission Date: 20110831
  Serious: Yes (Death, Hospitalization)
  Sender: FDA-Public Use
  Company Number: None

PATIENT
  Age: 75 Year
  Sex: Male
  Weight: 47.6277 kg

DRUGS (9)
  1. PERCOCET [Concomitant]
  2. BEVACIZUMAB [Suspect]
     Indication: NON-SMALL CELL LUNG CANCER
     Dosage: 15MG/M2 IV
     Route: 042
     Dates: start: 20110103, end: 20110214
  3. SIMVASTATIN [Concomitant]
  4. PEMETREXED [Suspect]
     Indication: NON-SMALL CELL LUNG CANCER
     Dosage: 500MG/M2 IV
     Route: 042
     Dates: start: 20110103, end: 20110103
  5. NIFEDIPINE [Concomitant]
  6. HYDROCHLOROTHIAZIDE [Concomitant]
  7. ATENOLOL [Concomitant]
  8. CARBOPLATIN [Suspect]
     Indication: NON-SMALL CELL LUNG CANCER
     Dosage: AUC 5
     Dates: start: 20110103, end: 20110103
  9. LISINOPRIL [Concomitant]

REACTIONS (3)
  - CONVULSION [None]
  - UNRESPONSIVE TO STIMULI [None]
  - STATUS EPILEPTICUS [None]
